FAERS Safety Report 9236947 (Version 1)
Quarter: 2013Q2

REPORT INFORMATION
  Report Type: Spontaneous
  Country: FR (occurrence: None)
  Receive Date: 20130415
  Receipt Date: 20130415
  Transmission Date: 20140414
  Serious: Yes (Hospitalization)
  Sender: FDA-Public Use
  Company Number: SYM-2013-02552

PATIENT
  Age: 57 Year
  Sex: Female

DRUGS (30)
  1. ZOVIRAX [Suspect]
     Indication: PROPHYLAXIS
     Dates: start: 20120731, end: 20120807
  2. FORTUM [Suspect]
     Indication: PSEUDOMONAS INFECTION
     Route: 042
     Dates: start: 20120802, end: 20120809
  3. OXYNORM [Suspect]
     Indication: PAIN
     Route: 048
     Dates: start: 20120731, end: 20120805
  4. PLITICAN (ALIZAPRIDE HYDROCHLORIDE) INFUSION [Suspect]
     Indication: NAUSEA
     Route: 042
     Dates: start: 20120727, end: 20120808
  5. VANCOMYCIN [Suspect]
     Indication: PSEUDOMONAS INFECTION
     Route: 042
     Dates: start: 20120803, end: 20120805
  6. TRIFLUCAN [Suspect]
     Indication: PROPHYLAXIS
     Dates: start: 20120725, end: 20120806
  7. FLAGYL (METRONISAZOLE) (METRONIDAZOLE) [Concomitant]
  8. ZOPHREN (ONDANSETRON HYDROCHLORIDE) (ONDANSETRON HYDROCHLORIDE) [Concomitant]
  9. DEXAMETHASONE (DEXAMETHASONE) (DEXAMETHASONE) [Concomitant]
  10. TERMERITE (NEBIVOLOL HYDROCHLORIDE) (NEBIVOLOL HYDROCHLORIDE) [Concomitant]
  11. VERSATIS (LIDOCAINE HYDROCHLORIDE) (LIDOCAINE HYDROCHLORIDE) [Concomitant]
  12. LIPANTHYL (FENOFIBRATE) (FENOFIBRATE) [Concomitant]
  13. COOLMETEC AND ATLEIS DUO (BENICAR HCT) (HYDROCHLOROTHIAZIDE, OLMESARTAN MEDOXOMIL) [Concomitant]
  14. ALKERAN (MELPHALAN) (MELPHALAN) [Concomitant]
  15. NEULASTA (PEGFILGRASTIM) (PEGFILGRASTIM) [Concomitant]
  16. VELCADE (DIOSMECTITE) (DIOSMECTITE) [Concomitant]
  17. THALIDOMIDE (THALIDOMIDE) (THALIDOMIDE) [Concomitant]
  18. MYOLASTAN (TETRAZEPAM) (TETRAZEPAM) [Concomitant]
  19. TRANSIPEG (MACROGOL) (MACROGOL) [Concomitant]
  20. CERNEVIT(CERNEVIT/06027301/)(ASCORBIC ACID, PYRIDOXINE HYDROCHLORIDE, BIOTIN, TOCOPHEROL, FOLIC ACID, COLECALCIFEROL, CYANOCOBALAMIN, RETINOL PALMITATE, DEXPANTHENOL, NICOTINAMIDE, RIBOFLAVIN SODIUM PHOSPHATE, COCARBOXYLASE TETRAHYDRATE) [Concomitant]
  21. DECAN (DEXAMETHASONE) (DEXAMETHASONE) [Concomitant]
  22. OLICLINOMEL (AMINO ACIDS NOS W/CARBOHYDRATES NOS/07403601/) (AMINO ACIDS NOS, ELECTROLYTES NOS, CARBOHYDRATES NOS, LIPIDS NOS) [Concomitant]
  23. PERFALGAN [Concomitant]
  24. AMIKLIN (AMIKACIN SULFATE) (AMIKACIN SULFATE) [Concomitant]
  25. ACUPAN (NEFOPAM HYDROCHLORIDE) (NEFOPAM HYDROCHLORIDE) [Concomitant]
  26. SPASFON (SPASFON/00765801/) (PHLOROGLUCINOL, TRIMETHYLPHLOROGLUCINOL) [Concomitant]
  27. SMECTA (DIOSMECTITE) (DIOSMECTITE) [Concomitant]
  28. TIOFRAN (ACETORPHAN) (ACETORPHAN) [Concomitant]
  29. MOPRAL (OMEPRAZOLE) (OMEPRAZOLE) [Concomitant]
  30. ZELITREX (VALACICLOVIR HYDROCHLORIDE) (VALACICLOVIR HYDROCHLORIDE) [Concomitant]

REACTIONS (9)
  - Rash maculo-papular [None]
  - Jaundice cholestatic [None]
  - Paraesthesia [None]
  - Hypercapnia [None]
  - Hyperventilation [None]
  - Flushing [None]
  - Blood pressure increased [None]
  - Diarrhoea [None]
  - Bronchospasm [None]
